FAERS Safety Report 7812445-8 (Version None)
Quarter: 2011Q4

REPORT INFORMATION
  Report Type: 
  Country: None (occurrence: None)
  Receive Date: 20111013
  Receipt Date: 20111007
  Transmission Date: 20120403
  Serious: Yes (Other)
  Sender: FDA-Public Use
  Company Number: FR-PFIZER INC-2011239531

PATIENT
  Sex: Male

DRUGS (1)
  1. ZOLOFT [Suspect]

REACTIONS (2)
  - HYPOKALAEMIA [None]
  - VOMITING [None]
